FAERS Safety Report 7360973-4 (Version None)
Quarter: 2011Q1

REPORT INFORMATION
  Report Type: 
  Country: None (occurrence: None)
  Receive Date: 20110315
  Receipt Date: 20110315
  Transmission Date: 20110831
  Serious: Yes (Hospitalization)
  Sender: FDA-Public Use
  Company Number: None

PATIENT
  Age: 11 Year
  Sex: Female
  Weight: 38.7 kg

DRUGS (1)
  1. PRIVIGEN [Suspect]
     Indication: IDIOPATHIC THROMBOCYTOPENIC PURPURA
     Dosage: 40 G ONCE IV
     Route: 042
     Dates: start: 20101118, end: 20101118

REACTIONS (8)
  - PLATELET COUNT DECREASED [None]
  - POST PROCEDURAL HAEMORRHAGE [None]
  - RHINORRHOEA [None]
  - HAEMORRHAGE [None]
  - SNEEZING [None]
  - PHOTOPHOBIA [None]
  - HEADACHE [None]
  - VOMITING [None]
